FAERS Safety Report 9977593 (Version 1)
Quarter: 2014Q1

REPORT INFORMATION
  Report Type: Spontaneous
  Country: US (occurrence: US)
  Receive Date: 20140306
  Receipt Date: 20140306
  Transmission Date: 20141002
  Serious: No
  Sender: FDA-Public Use
  Company Number: US-ABBVIE-13P-163-1162682-00

PATIENT
  Age: 44 Year
  Sex: Female
  Weight: 83.08 kg

DRUGS (9)
  1. HUMIRA [Suspect]
     Indication: RHEUMATOID ARTHRITIS
     Dates: start: 20131008, end: 20131008
  2. HUMIRA [Suspect]
     Indication: CROHN^S DISEASE
     Dates: start: 20131022, end: 20131022
  3. METHOTREXATE [Concomitant]
     Indication: PRODUCT USED FOR UNKNOWN INDICATION
  4. METFORMIN [Concomitant]
     Indication: DIABETES MELLITUS
  5. VITAMIN E [Concomitant]
     Indication: PRODUCT USED FOR UNKNOWN INDICATION
  6. NEXIUM [Concomitant]
     Indication: GASTROOESOPHAGEAL REFLUX DISEASE
  7. CLARITIN [Concomitant]
     Indication: HYPERSENSITIVITY
  8. HYDROCORTISONE [Concomitant]
     Indication: PRURITUS
  9. ASACOL [Concomitant]
     Indication: CROHN^S DISEASE

REACTIONS (1)
  - Injection site bruising [Recovered/Resolved]
